FAERS Safety Report 17391409 (Version 1)
Quarter: 2020Q1

REPORT INFORMATION
  Report Type: Spontaneous
  Country: GB (occurrence: GB)
  Receive Date: 20200207
  Receipt Date: 20200207
  Transmission Date: 20200409
  Serious: Yes (Hospitalization)
  Sender: FDA-Public Use
  Company Number: GB-MYLANLABS-2020M1013535

PATIENT
  Age: 95 Year
  Sex: Female

DRUGS (6)
  1. INDAPAMIDE. [Suspect]
     Active Substance: INDAPAMIDE
     Indication: PRODUCT USED FOR UNKNOWN INDICATION
     Dosage: 2.5 MILLIGRAM, QD IN MORNING
     Route: 048
  2. AMIODARONE [Suspect]
     Active Substance: AMIODARONE
     Indication: PRODUCT USED FOR UNKNOWN INDICATION
     Dosage: 100 MILLIGRAM, AM (IN MORNING)
     Route: 048
  3. COCODAMOL [Concomitant]
     Active Substance: ACETAMINOPHEN\CODEINE PHOSPHATE
     Dosage: 8MG/500MG, TAKE IN MORNING
     Route: 048
  4. ACETYLSALICYLIC ACID [Concomitant]
     Active Substance: ASPIRIN
     Dosage: 75 MILLIGRAM, AM (IN MORNING)
     Route: 048
  5. TIMOLOL. [Concomitant]
     Active Substance: TIMOLOL
     Dosage: 1 DOSAGE FORM, QD (5MG/ML, DROPS)
     Route: 031
  6. LATANOPROST. [Concomitant]
     Active Substance: LATANOPROST
     Dosage: 50MICROGRAMS/ML, DROPS
     Route: 031

REACTIONS (3)
  - Electrocardiogram QT prolonged [Recovered/Resolved]
  - Acute kidney injury [Recovered/Resolved]
  - Arrhythmia [Recovered/Resolved]

NARRATIVE: CASE EVENT DATE: 20191103
